FAERS Safety Report 6016302-1 (Version None)
Quarter: 2008Q4

REPORT INFORMATION
  Report Type: 
  Country: None (occurrence: None)
  Receive Date: 20081217
  Receipt Date: 20081107
  Transmission Date: 20090506
  Serious: Yes (Other)
  Sender: FDA-Public Use
  Company Number: US-WYE-H06801008

PATIENT
  Age: 68 Year
  Sex: Female
  Weight: 82 kg

DRUGS (11)
  1. TORISEL [Suspect]
     Indication: RENAL CELL CARCINOMA
     Dosage: 25 MG 1X PER 1 WK, INTRAVENOUS
     Route: 042
     Dates: start: 20080505, end: 20081002
  2. COLAE (DOCUSATE SODIUM) [Concomitant]
  3. GLUCOPHAGE [Concomitant]
  4. PREMARIN [Concomitant]
  5. PROTONIX [Concomitant]
  6. LEXAPRO [Concomitant]
  7. METOPROLOL TARTRATE [Concomitant]
  8. NEUTRA-PHOS (POTASSIUM PHOSPHATE DIBASIC/POTASSIUM PHOSPHATE MONOBASIC [Concomitant]
  9. MYLANTA (ALUMINIUM HYDROXIDE GEL, DRIED/DIMETICONE, ACTIVATED/MAGNESIU [Concomitant]
  10. TUMS (CALCIUM CARBONATE/MAGNESIUM CARBONATE/MAGNESIUM TRISILICATE) [Concomitant]
  11. ACETAMINOPHEN [Concomitant]

REACTIONS (1)
  - INTERSTITIAL LUNG DISEASE [None]
